FAERS Safety Report 7754053-3 (Version None)
Quarter: 2011Q3

REPORT INFORMATION
  Report Type: 
  Country: None (occurrence: None)
  Receive Date: 20110915
  Receipt Date: 20110906
  Transmission Date: 20111222
  Serious: Yes (Hospitalization)
  Sender: FDA-Public Use
  Company Number: US-ASTRAZENECA-2011SE53497

PATIENT
  Age: 58 Year
  Sex: Female
  Weight: 83.9 kg

DRUGS (3)
  1. SEROQUEL [Suspect]
     Indication: SLEEP DISORDER
     Route: 048
     Dates: start: 20020101
  2. LYRICA [Concomitant]
  3. SEROQUEL [Suspect]
     Indication: CONVULSION
     Route: 048
     Dates: start: 20020101

REACTIONS (3)
  - DRUG DOSE OMISSION [None]
  - CONVULSION [None]
  - OFF LABEL USE [None]
